FAERS Safety Report 25754165 (Version 2)
Quarter: 2025Q3

REPORT INFORMATION
  Report Type: Spontaneous
  Country: JP (occurrence: JP)
  Receive Date: 20250903
  Receipt Date: 20250924
  Transmission Date: 20251021
  Serious: Yes (Death, Other)
  Sender: JAZZ
  Company Number: JP-JAZZ PHARMACEUTICALS-2025-JP-013011

PATIENT
  Age: 67 Year
  Sex: Female

DRUGS (1)
  1. VYXEOS [Suspect]
     Active Substance: CYTARABINE\DAUNORUBICIN
     Indication: Acute myeloid leukaemia

REACTIONS (7)
  - Death [Fatal]
  - Acute myeloid leukaemia [Unknown]
  - Papule [Unknown]
  - Erythema [Recovered/Resolved]
  - Purpura [Recovering/Resolving]
  - Drug eruption [Unknown]
  - Drug ineffective [Unknown]
